FAERS Safety Report 8355827-0 (Version None)
Quarter: 2012Q2

REPORT INFORMATION
  Report Type: 
  Country: None (occurrence: None)
  Receive Date: 20120514
  Receipt Date: 20120503
  Transmission Date: 20120825
  Serious: Yes (Hospitalization)
  Sender: FDA-Public Use
  Company Number: FR-BRISTOL-MYERS SQUIBB COMPANY-16574089

PATIENT
  Age: 87 Year
  Sex: Female

DRUGS (8)
  1. LASIX [Concomitant]
     Dosage: LASILIX 40 MG, SCORED TABLET (FUROSEMIDE) ONE INTAKE DAILY
     Route: 048
  2. COUMADIN [Suspect]
     Indication: ATRIAL FIBRILLATION
     Dosage: 1 DF:COUMADINE 5 MG, SCORED TABLET (WARFARIN) ONE INTAKE DAILY ORALLY
     Route: 048
     Dates: start: 20120305, end: 20120309
  3. NEBIVOLOL HCL [Concomitant]
     Dosage: TEMERIT 5 MG, QUADRI-SCORED TABLET (NEBIVOLOL) ONE INTAKE DAILY
     Route: 048
  4. LOVENOX [Suspect]
     Dosage: LOVENOX 4 000 IU ANTI-XA/0.4 ML, SOLUTION FOR INJECTION IN CARTRIDGE
     Route: 058
     Dates: start: 20120313, end: 20120316
  5. DUPHALAC [Concomitant]
     Route: 048
  6. ASPIRIN [Concomitant]
     Dosage: KARDEGIC 75 MG, POWDER FOR ORAL SOLUTION IN SACHET (LYSINE ACETYLSALICYLATE)
     Route: 048
     Dates: end: 20120301
  7. APROVEL [Concomitant]
     Route: 048
  8. ACETAMINOPHEN [Concomitant]
     Route: 048

REACTIONS (5)
  - ANAEMIA [None]
  - INTERNATIONAL NORMALISED RATIO INCREASED [None]
  - SKIN NECROSIS [None]
  - HAEMATOMA [None]
  - FALL [None]
